FAERS Safety Report 21191455 (Version 1)
Quarter: 2022Q3

REPORT INFORMATION
  Report Type: Spontaneous
  Country: US (occurrence: US)
  Receive Date: 20220809
  Receipt Date: 20220809
  Transmission Date: 20221026
  Serious: No
  Sender: FDA-Public Use
  Company Number: US-JOURNEY MEDICAL CORPORATION-2021JNY00026

PATIENT
  Age: 31 Year
  Sex: Female
  Weight: 62.132 kg

DRUGS (1)
  1. QBREXZA [Suspect]
     Active Substance: GLYCOPYRRONIUM TOSYLATE
     Indication: Hyperhidrosis
     Dosage: 1 DOSAGE UNITS, 1X/DAY (PATIENT USUALLY USED EVERY OTHER DAY) UNDER THE ARMS
     Route: 061
     Dates: start: 202107

REACTIONS (2)
  - Vision blurred [Recovered/Resolved]
  - Exposure via eye contact [Recovered/Resolved]

NARRATIVE: CASE EVENT DATE: 20210824
